FAERS Safety Report 8773810 (Version 1)
Quarter: 2012Q4

REPORT INFORMATION
  Report Type: 
  Country: US (occurrence: US)
  Receive Date: 20120907
  Receipt Date: 20120907
  Transmission Date: 20130627
  Serious: No
  Sender: FDA-Public Use
  Company Number: US-009507513-1208USA009951

PATIENT

DRUGS (5)
  1. CLARITIN [Suspect]
     Indication: HYPERSENSITIVITY
     Dosage: UNK, qd
     Route: 048
     Dates: start: 201208
  2. CLARITIN [Suspect]
     Dosage: 10 mg, Once
     Route: 048
     Dates: start: 20120809
  3. CLARITIN [Suspect]
     Dosage: 10 mg, Once
     Route: 048
     Dates: start: 20120809
  4. SERTRALINE HYDROCHLORIDE [Concomitant]
     Indication: PRODUCT USED FOR UNKNOWN INDICATION
     Dosage: UNK, Unknown
  5. ADVAIR [Concomitant]
     Indication: PRODUCT USED FOR UNKNOWN INDICATION
     Dosage: UNK, Unknown

REACTIONS (1)
  - Overdose [Unknown]
